FAERS Safety Report 16895325 (Version 1)
Quarter: 2019Q4

REPORT INFORMATION
  Report Type: Spontaneous
  Country: US (occurrence: US)
  Receive Date: 20191007
  Receipt Date: 20191007
  Transmission Date: 20200122
  Serious: Yes (Disabling)
  Sender: FDA-Public Use
  Company Number: None

PATIENT
  Age: 50 Year
  Sex: Male
  Weight: 102.6 kg

DRUGS (1)
  1. REMICADE [Suspect]
     Active Substance: INFLIXIMAB
     Indication: CROHN^S DISEASE
     Dosage: ?          OTHER FREQUENCY:EVERY 8 WEEKS;OTHER ROUTE:INFUSION?
     Dates: start: 20091001, end: 20191007

REACTIONS (5)
  - Nervous system disorder [None]
  - Central nervous system lesion [None]
  - Dizziness [None]
  - Frustration tolerance decreased [None]
  - Sinusitis [None]

NARRATIVE: CASE EVENT DATE: 20191007
